FAERS Safety Report 6404892-6 (Version None)
Quarter: 2009Q4

REPORT INFORMATION
  Report Type: 
  Country: None (occurrence: None)
  Receive Date: 20091019
  Receipt Date: 20091013
  Transmission Date: 20100525
  Serious: Yes (Other)
  Sender: FDA-Public Use
  Company Number: US-TEVA-212362USA

PATIENT
  Sex: Female
  Weight: 131.66 kg

DRUGS (2)
  1. CLARAVIS [Suspect]
     Route: 048
     Dates: start: 20090727, end: 20091011
  2. OCP [Concomitant]
     Indication: CONTRACEPTION
     Route: 048

REACTIONS (2)
  - MENORRHAGIA [None]
  - UNINTENDED PREGNANCY [None]
